FAERS Safety Report 23864786 (Version 1)
Quarter: 2024Q2

REPORT INFORMATION
  Report Type: Spontaneous
  Country: CN (occurrence: CN)
  Receive Date: 20240516
  Receipt Date: 20240516
  Transmission Date: 20240716
  Serious: Yes (Other)
  Sender: FDA-Public Use
  Company Number: CN-002147023-NVSC2024CN103835

PATIENT
  Age: 74 Year
  Sex: Male
  Weight: 66 kg

DRUGS (3)
  1. SACUBITRIL\VALSARTAN [Suspect]
     Active Substance: SACUBITRIL\VALSARTAN
     Indication: Nephrogenic anaemia
     Dosage: 50 MG, QD
     Route: 048
     Dates: start: 20240428, end: 20240429
  2. AMLODIPINE BESYLATE [Concomitant]
     Active Substance: AMLODIPINE BESYLATE
     Indication: Nephrogenic anaemia
     Dosage: 5 MG, QD
     Route: 048
     Dates: start: 20240425, end: 20240501
  3. FEBUXOSTAT [Concomitant]
     Active Substance: FEBUXOSTAT
     Indication: Nephrogenic anaemia
     Dosage: 40 MG, QD
     Route: 048
     Dates: start: 20240425, end: 20240501

REACTIONS (2)
  - Amaurosis [Recovering/Resolving]
  - Dizziness [Recovering/Resolving]

NARRATIVE: CASE EVENT DATE: 20240429
